FAERS Safety Report 6906998-1 (Version None)
Quarter: 2010Q3

REPORT INFORMATION
  Report Type: 
  Country: None (occurrence: None)
  Receive Date: 20100804
  Receipt Date: 20080403
  Transmission Date: 20110219
  Serious: No
  Sender: FDA-Public Use
  Company Number: US-PFIZER INC-2008030048

PATIENT
  Sex: Female
  Weight: 55.79 kg

DRUGS (2)
  1. NARDIL [Suspect]
     Indication: DEPRESSION
     Dates: start: 20050201, end: 20070701
  2. LUNESTA [Concomitant]

REACTIONS (3)
  - BURNING SENSATION [None]
  - PRURITUS [None]
  - RASH [None]
